FAERS Safety Report 5808537-5 (Version None)
Quarter: 2008Q3

REPORT INFORMATION
  Report Type: 
  Country: None (occurrence: None)
  Receive Date: 20080702
  Receipt Date: 20080409
  Transmission Date: 20090109
  Serious: Yes (Other)
  Sender: FDA-Public Use
  Company Number: US-WYE-H03550108

PATIENT
  Age: 67 Year
  Sex: Female

DRUGS (2)
  1. ADVIL LIQUI-GELS [Suspect]
     Dosage: ORAL
     Route: 048
     Dates: start: 20080222
  2. THERAFLU FLU AND SORE THROAT (ACETAMINOPHEN/PHENIRAMINE MALEATE/PHENYL [Suspect]
     Indication: NASOPHARYNGITIS
     Dosage: 6 TEASPOONS, ONCE, ORAL
     Route: 048
     Dates: start: 20080222, end: 20080222

REACTIONS (3)
  - PAIN [None]
  - RASH [None]
  - VOMITING [None]
